FAERS Safety Report 4952281-3 (Version None)
Quarter: 2006Q1

REPORT INFORMATION
  Report Type: 
  Country: None (occurrence: None)
  Receive Date: 20060131
  Receipt Date: 20050531
  Transmission Date: 20060701
  Serious: Yes (Other)
  Sender: FDA-Public Use
  Company Number: WAES 0506USA00104

PATIENT
  Sex: Female

DRUGS (1)
  1. STROMECTOL [Suspect]
     Indication: PRURITUS
     Dosage: 3 TABLET WKY PO
     Route: 048

REACTIONS (3)
  - PRESCRIBED OVERDOSE [None]
  - PRURITUS [None]
  - RASH [None]
